FAERS Safety Report 9484550 (Version 1)
Quarter: 2013Q3

REPORT INFORMATION
  Report Type: Spontaneous
  Country: US (occurrence: US)
  Receive Date: 20130828
  Receipt Date: 20130828
  Transmission Date: 20140515
  Serious: Yes (Other)
  Sender: FDA-Public Use
  Company Number: US-AMGEN-KDL426901

PATIENT
  Age: 48 Year
  Sex: Male

DRUGS (2)
  1. ENBREL [Suspect]
     Indication: RHEUMATOID ARTHRITIS
     Dosage: 25 MG, QWK
     Route: 058
     Dates: start: 19990701
  2. METHOTREXATE [Concomitant]
     Dosage: 12.5 MG, QWK

REACTIONS (14)
  - Uveitis [Recovered/Resolved]
  - Herpes ophthalmic [Recovered/Resolved]
  - Necrotising scleritis [Recovered/Resolved]
  - Corneal disorder [Recovered/Resolved]
  - Pericarditis [Recovered/Resolved]
  - Scleral graft [Recovered/Resolved]
  - Otitis media [Recovered/Resolved]
  - Cataract [Recovered/Resolved]
  - Joint destruction [Not Recovered/Not Resolved]
  - Myalgia [Not Recovered/Not Resolved]
  - Meniscus injury [Recovered/Resolved]
  - Somnolence [Not Recovered/Not Resolved]
  - Arthralgia [Not Recovered/Not Resolved]
  - Fatigue [Not Recovered/Not Resolved]
